FAERS Safety Report 13224458 (Version 1)
Quarter: 2017Q1

REPORT INFORMATION
  Report Type: Report from Study
  Country: CA (occurrence: CA)
  Receive Date: 20170212
  Receipt Date: 20170212
  Transmission Date: 20170428
  Serious: Yes (Death)
  Sender: FDA-Public Use
  Company Number: PHHY2015CA139183

PATIENT
  Age: 73 Year
  Sex: Female

DRUGS (2)
  1. SANDOSTATIN LAR DEPOT [Suspect]
     Active Substance: OCTREOTIDE ACETATE
     Dosage: 60 MG, (TIW) EVERY 3 WEEKS
     Route: 030
     Dates: start: 2011
  2. SANDOSTATIN LAR DEPOT [Suspect]
     Active Substance: OCTREOTIDE ACETATE
     Indication: CARCINOID SYNDROME
     Dosage: 60 MG, QMO (EVERY 4WEEKS)
     Route: 030

REACTIONS (3)
  - Death [Fatal]
  - Inappropriate schedule of drug administration [Unknown]
  - Needle issue [Unknown]

NARRATIVE: CASE EVENT DATE: 2011
